FAERS Safety Report 6667501-7 (Version None)
Quarter: 2010Q2

REPORT INFORMATION
  Report Type: 
  Country: None (occurrence: None)
  Receive Date: 20100405
  Receipt Date: 20100401
  Transmission Date: 20101027
  Serious: Yes (Other)
  Sender: FDA-Public Use
  Company Number: CA-ROCHE-694098

PATIENT
  Sex: Female

DRUGS (3)
  1. CLONAZEPAM [Suspect]
     Indication: ANXIETY
     Dosage: BATCH NUMBER: E0166B019, DRUG DID NOT WORK (LACK OF EFFECT)
     Route: 065
     Dates: start: 20100325
  2. CLONAZEPAM [Suspect]
     Dosage: PATIENT TAKING RIVOTRIL FOR YEARS
     Route: 065
  3. ATENOLOL [Concomitant]
     Indication: HYPERTENSION

REACTIONS (1)
  - DRUG INEFFECTIVE [None]
